FAERS Safety Report 4458058-X (Version None)
Quarter: 2004Q3

REPORT INFORMATION
  Report Type: 
  Country: None (occurrence: None)
  Receive Date: 20040922
  Receipt Date: 20040922
  Transmission Date: 20050211
  Serious: Yes (Death)
  Sender: FDA-Public Use
  Company Number: EWC040940457

PATIENT
  Age: 35 Year
  Sex: Male

DRUGS (4)
  1. ZYPREXA [Suspect]
     Dosage: 10 MG DAY
     Dates: start: 20020717, end: 20040101
  2. CARBAMAZEPINE [Concomitant]
  3. FLUOXETINE [Concomitant]
  4. LEVOPROMAZINE [Concomitant]

REACTIONS (8)
  - ASPIRATION [None]
  - CEREBRAL ATROPHY [None]
  - CEREBRAL DISORDER [None]
  - CEREBRAL HAEMORRHAGE [None]
  - DRUG SCREEN POSITIVE [None]
  - EPILEPSY [None]
  - SCAR [None]
  - THERAPEUTIC AGENT TOXICITY [None]
